FAERS Safety Report 21043965 (Version 1)
Quarter: 2022Q3

REPORT INFORMATION
  Report Type: Spontaneous
  Country: US (occurrence: None)
  Receive Date: 20220702
  Receipt Date: 20220702
  Transmission Date: 20221026
  Serious: Yes (Other)
  Sender: FDA-Public Use
  Company Number: None

PATIENT
  Age: 52 Year
  Sex: Male
  Weight: 99 kg

DRUGS (9)
  1. GABAPENTIN [Suspect]
     Active Substance: GABAPENTIN
     Indication: Neuralgia
  2. MORPHINE [Concomitant]
     Active Substance: MORPHINE
  3. OXYCODONE [Concomitant]
     Active Substance: OXYCODONE
  4. CYCLOBENZAPRINE [Concomitant]
     Active Substance: CYCLOBENZAPRINE
  5. CELEXA [Concomitant]
     Active Substance: CITALOPRAM HYDROBROMIDE
  6. AMBIEN [Concomitant]
     Active Substance: ZOLPIDEM TARTRATE
  7. med cannibis [Concomitant]
  8. Multi vitamin gummy equate [Concomitant]
  9. centrum mens over 50 gummy [Concomitant]

REACTIONS (2)
  - Product label issue [None]
  - Completed suicide [None]

NARRATIVE: CASE EVENT DATE: 20210101
